FAERS Safety Report 22261776 (Version 1)
Quarter: 2023Q2

REPORT INFORMATION
  Report Type: Spontaneous
  Country: SE (occurrence: SE)
  Receive Date: 20230428
  Receipt Date: 20230428
  Transmission Date: 20230721
  Serious: Yes (Death)
  Sender: FDA-Public Use
  Company Number: SE-ABBVIE-4745595

PATIENT
  Age: 44 Year
  Sex: Male

DRUGS (2)
  1. RINVOQ [Suspect]
     Active Substance: UPADACITINIB
     Indication: Dermatitis atopic
     Route: 048
     Dates: start: 202210
  2. DUPILUMAB [Suspect]
     Active Substance: DUPILUMAB
     Indication: Product used for unknown indication
     Route: 065

REACTIONS (6)
  - Completed suicide [Fatal]
  - Hepatomegaly [Unknown]
  - Abdominal discomfort [Unknown]
  - Liver function test increased [Unknown]
  - Nausea [Unknown]
  - Vomiting [Unknown]
